FAERS Safety Report 10302496 (Version 1)
Quarter: 2014Q3

REPORT INFORMATION
  Report Type: Spontaneous
  Country: FR (occurrence: FR)
  Receive Date: 20140714
  Receipt Date: 20140714
  Transmission Date: 20150326
  Serious: Yes (Death, Life-Threatening, Hospitalization)
  Sender: FDA-Public Use
  Company Number: FR-BRISTOL-MYERS SQUIBB COMPANY-21174941

PATIENT
  Age: 85 Year
  Sex: Male

DRUGS (1)
  1. COUMADINE [Suspect]
     Active Substance: WARFARIN SODIUM
     Dosage: 2MG TABLET:4 MG/D OR 3 MG/D ALTERNATIVELY ORALLY UNTIL 02JUN2014
     Route: 048

REACTIONS (5)
  - Head injury [Fatal]
  - Fall [Fatal]
  - Subdural haematoma [Fatal]
  - International normalised ratio increased [Unknown]
  - Extradural haematoma [Fatal]

NARRATIVE: CASE EVENT DATE: 20140602
